FAERS Safety Report 7920062-4 (Version None)
Quarter: 2011Q4

REPORT INFORMATION
  Report Type: 
  Country: None (occurrence: None)
  Receive Date: 20111117
  Receipt Date: 20111115
  Transmission Date: 20120403
  Serious: Yes (Hospitalization)
  Sender: FDA-Public Use
  Company Number: US-VERTEX PHARMACEUTICALS INC.-AE-2011-003096

PATIENT
  Sex: Male

DRUGS (15)
  1. VITAMIN B-12 [Concomitant]
  2. INCIVEK [Suspect]
     Indication: HEPATITIS C
     Route: 048
     Dates: start: 20111003
  3. RIBAVIRIN [Concomitant]
     Route: 048
  4. MULTI-VITAMIN [Concomitant]
  5. HYDROXYZINE [Concomitant]
  6. PRAVASTATIN [Concomitant]
     Route: 048
  7. SPIRONOLACTONE [Concomitant]
     Route: 048
  8. PEGINTERFERON ALPFA-2A [Concomitant]
     Indication: HEPATITIS C
     Route: 058
     Dates: start: 20111003
  9. RIBAVIRIN [Concomitant]
     Indication: HEPATITIS C
     Route: 048
     Dates: start: 20111003
  10. LITHIUM CARBONATE [Concomitant]
     Route: 048
  11. OMEPRAZOLE [Concomitant]
     Route: 048
  12. METOPROLOL TARTRATE [Concomitant]
     Route: 048
  13. ASPIRIN [Concomitant]
     Route: 048
  14. LISINOPRIL [Concomitant]
     Route: 048
  15. TRIAMCINOLONE [Concomitant]

REACTIONS (6)
  - TOXICITY TO VARIOUS AGENTS [None]
  - RENAL FAILURE [None]
  - MENTAL STATUS CHANGES [None]
  - ANAL PRURITUS [None]
  - DIARRHOEA [None]
  - DEHYDRATION [None]
